FAERS Safety Report 8033868-0 (Version None)
Quarter: 2012Q1

REPORT INFORMATION
  Report Type: 
  Country: None (occurrence: None)
  Receive Date: 20120110
  Receipt Date: 20120109
  Transmission Date: 20120608
  Serious: Yes (Life-Threatening, Hospitalization)
  Sender: FDA-Public Use
  Company Number: US-B.I. PHARMACEUTICALS,INC./RIDGEFIELD-2011-BP-28677BP

PATIENT
  Sex: Female
  Weight: 65.77 kg

DRUGS (5)
  1. CALCIUM AND VITAMIN D [Concomitant]
  2. COZAAR [Concomitant]
     Indication: HYPERTENSION
     Dosage: 50 MCG
     Dates: start: 20060329
  3. LEVOXYL [Concomitant]
     Indication: HYPOTHYROIDISM
     Dosage: 75 MG
  4. PRADAXA [Suspect]
     Indication: ATRIAL FIBRILLATION
     Dosage: 300 MG
     Route: 048
     Dates: start: 20111122, end: 20111204
  5. METOPROLOL SUCCINATE [Concomitant]
     Indication: HYPERTENSION
     Dosage: 25 MG
     Dates: start: 20060329

REACTIONS (1)
  - GASTROINTESTINAL HAEMORRHAGE [None]
